FAERS Safety Report 7371294-8 (Version None)
Quarter: 2011Q1

REPORT INFORMATION
  Report Type: 
  Country: None (occurrence: None)
  Receive Date: 20110324
  Receipt Date: 20110315
  Transmission Date: 20110831
  Serious: Yes (Other)
  Sender: FDA-Public Use
  Company Number: HK-AMGEN-HKGSP2011009625

PATIENT
  Sex: Female

DRUGS (2)
  1. ENBREL [Suspect]
     Dosage: 25 MG, QWK
     Dates: start: 20110211
  2. ENBREL [Suspect]
     Indication: ANKYLOSING SPONDYLITIS
     Dosage: 25 MG, 10 TO 14 DAYS PER DOSE
     Dates: start: 20060101, end: 20110101

REACTIONS (3)
  - PRURITUS [None]
  - RASH [None]
  - IRITIS [None]
